FAERS Safety Report 7900714-2 (Version None)
Quarter: 2011Q4

REPORT INFORMATION
  Report Type: 
  Country: None (occurrence: None)
  Receive Date: 20111108
  Receipt Date: 20111102
  Transmission Date: 20120403
  Serious: Yes (Other)
  Sender: FDA-Public Use
  Company Number: US-CELGENEUS-163-21880-11101446

PATIENT
  Sex: Male
  Weight: 75.5 kg

DRUGS (36)
  1. PERCOCET [Concomitant]
     Indication: PAIN MANAGEMENT
     Dosage: 5/325
     Route: 048
     Dates: start: 20100422, end: 20101022
  2. FISH OIL [Concomitant]
     Indication: PROPHYLAXIS
     Dosage: 1 TABLET
     Route: 048
     Dates: start: 20110225, end: 20110926
  3. LORTAB [Concomitant]
     Indication: PAIN
     Dosage: 5-500MG
     Route: 048
     Dates: end: 20110930
  4. ALPHA LIPOIC ACID [Concomitant]
     Indication: PROPHYLAXIS
     Dosage: 600 MILLIGRAM
     Route: 048
     Dates: start: 20110902
  5. DEXAMETHASONE [Suspect]
     Indication: MULTIPLE MYELOMA
     Dosage: 20 MILLIGRAM
     Route: 065
     Dates: start: 20100618, end: 20110107
  6. ACYCLOVIR [Concomitant]
     Indication: PROPHYLAXIS
     Dosage: 400 MILLIGRAM
     Route: 048
     Dates: start: 20100614, end: 20110225
  7. PROCHLORPERAZINE [Concomitant]
     Indication: NAUSEA
     Dosage: 10 MILLIGRAM
     Route: 048
     Dates: start: 20100614
  8. KEFLEX [Concomitant]
     Dosage: 500 MILLIGRAM
     Route: 048
     Dates: start: 20110930
  9. ACYCLOVIR [Concomitant]
     Dosage: 400 MILLIGRAM
     Route: 048
     Dates: start: 20110225
  10. OXYCODONE HCL [Concomitant]
     Indication: PAIN MANAGEMENT
     Dosage: 20 MILLIGRAM
     Route: 048
     Dates: start: 20100716
  11. NEUPOGEN [Concomitant]
     Indication: PROPHYLAXIS
     Dosage: 480 MICROGRAM
     Route: 058
     Dates: start: 20100902, end: 20100908
  12. COQ10 [Concomitant]
     Indication: PROPHYLAXIS
     Dosage: 1 TABLET
     Route: 048
     Dates: start: 20110902
  13. MELATONIN [Concomitant]
     Indication: INSOMNIA
     Dosage: 1/2 TAB
     Route: 048
     Dates: start: 20110902
  14. FLU SHOT [Concomitant]
     Indication: PROPHYLAXIS
     Dosage: X1 DOSE
     Route: 030
     Dates: start: 20111010, end: 20111010
  15. XANAX [Concomitant]
     Indication: ANXIETY
     Dosage: 1 MILLIGRAM
     Route: 048
     Dates: start: 20100712
  16. CALCIUM CARBONATE [Concomitant]
     Indication: PROPHYLAXIS
     Dosage: 500 MILLIGRAM
     Route: 048
     Dates: start: 20101112
  17. LORAZEPAM [Concomitant]
     Indication: ANXIETY
     Dosage: 1 MILLIGRAM
     Route: 048
     Dates: start: 20100830, end: 20101022
  18. ACIDOPHILUS [Concomitant]
     Indication: ANXIETY
     Dosage: 1 TABLET
     Route: 048
     Dates: start: 20100521
  19. POTASSIUM CHLORIDE [Concomitant]
     Indication: PROPHYLAXIS
     Dosage: 1 TABLET
     Route: 048
     Dates: start: 20100514, end: 20111010
  20. ASCORBIC ACID [Concomitant]
     Indication: PROPHYLAXIS
     Dosage: 1 TABLET
     Route: 048
     Dates: start: 20110729
  21. METFORMIN HCL [Concomitant]
     Indication: BLOOD GLUCOSE INCREASED
     Dosage: 1 TABLET
     Route: 048
     Dates: start: 20110922
  22. PROCHLORPERAZINE [Concomitant]
     Indication: VOMITING
  23. BACTRIM DS [Concomitant]
     Indication: PROPHYLAXIS
     Dosage: 1 TABLET
     Route: 048
     Dates: start: 20100618, end: 20110204
  24. SUPERVISION HERBAL [Concomitant]
     Indication: SUPPLEMENTATION THERAPY
     Dosage: 1 TABLET
     Route: 048
     Dates: start: 20100514
  25. ONDANSETRON [Concomitant]
     Indication: NAUSEA
     Dosage: 8 MILLIGRAM
     Route: 048
     Dates: start: 20100813
  26. CALCIUM WITH MAGNESIUM AND VITAMIN D [Concomitant]
     Indication: PROPHYLAXIS
     Dosage: 1 TABLET
     Route: 048
     Dates: start: 20110902
  27. SUPER B COMPLEX [Concomitant]
     Dosage: 1 TABLET
     Route: 048
     Dates: start: 20100730
  28. REVLIMID [Suspect]
     Indication: MULTIPLE MYELOMA
     Dosage: 20 MILLIGRAM
     Route: 048
     Dates: start: 20100618, end: 20110926
  29. REVLIMID [Suspect]
     Dosage: 20 MILLIGRAM
     Route: 048
     Dates: start: 20111010
  30. ASPIRIN [Concomitant]
     Indication: PROPHYLAXIS
     Dosage: 325 MILLIGRAM
     Route: 048
     Dates: start: 20100618
  31. ONDANSETRON [Concomitant]
     Indication: VOMITING
  32. XALATAN [Concomitant]
     Dosage: 1 GTT
     Route: 047
     Dates: start: 20100422
  33. FLAX SEED OIL [Concomitant]
     Indication: PROPHYLAXIS
     Dosage: 1 TABLET
     Route: 048
     Dates: start: 20100514, end: 20111010
  34. M.V.I. [Concomitant]
     Indication: PROPHYLAXIS
     Dosage: 1 TABLET
     Route: 048
     Dates: start: 20100514
  35. LIPOFLAVONOID [Concomitant]
     Indication: TINNITUS
     Dosage: 1 TABLET
     Route: 048
     Dates: start: 20110520
  36. VITAMIN E [Concomitant]
     Indication: PROPHYLAXIS
     Dosage: 400 IU (INTERNATIONAL UNIT)
     Route: 048
     Dates: start: 20110902

REACTIONS (2)
  - NEUTROPHIL COUNT DECREASED [None]
  - SQUAMOUS CELL CARCINOMA OF SKIN [None]
